FAERS Safety Report 9911534 (Version 4)
Quarter: 2014Q2

REPORT INFORMATION
  Report Type: Spontaneous
  Country: US (occurrence: US)
  Receive Date: 20140219
  Receipt Date: 20140529
  Transmission Date: 20141212
  Serious: Yes (Disabling)
  Sender: FDA-Public Use
  Company Number: PHEH2014US001974

PATIENT
  Sex: Female
  Weight: 77.2 kg

DRUGS (2)
  1. GILENYA [Suspect]
     Indication: MULTIPLE SCLEROSIS
     Dosage: 0.5 MG, UNK
     Route: 048
     Dates: start: 201204, end: 201307
  2. BACLOFEN [Concomitant]
     Indication: MUSCLE SPASMS
     Dosage: 20 MG, TID
     Route: 048

REACTIONS (2)
  - Limb discomfort [Not Recovered/Not Resolved]
  - Drug ineffective [Unknown]
